FAERS Safety Report 10530643 (Version 1)
Quarter: 2014Q4

REPORT INFORMATION
  Report Type: Spontaneous
  Country: ZA (occurrence: None)
  Receive Date: 20141017
  Receipt Date: 20141017
  Transmission Date: 20150528
  Serious: Yes (Hospitalization)
  Sender: FDA-Public Use
  Company Number: FK201404035

PATIENT
  Age: 32 Year
  Sex: Male

DRUGS (2)
  1. HALOPERIDOL. [Suspect]
     Active Substance: HALOPERIDOL
     Indication: MANIA
     Dates: start: 2003
  2. VALPROATE [Suspect]
     Active Substance: VALPROATE SODIUM
     Indication: MANIA
     Dates: start: 2003

REACTIONS (1)
  - Neuroleptic malignant syndrome [None]
